FAERS Safety Report 10897565 (Version 1)
Quarter: 2015Q1

REPORT INFORMATION
  Report Type: Spontaneous
  Country: US (occurrence: None)
  Receive Date: 20150302
  Receipt Date: 20150302
  Transmission Date: 20150721
  Serious: Yes (Hospitalization)
  Sender: FDA-Public Use
  Company Number: None

PATIENT
  Age: 63 Year
  Sex: Male
  Weight: 90.7 kg

DRUGS (16)
  1. LEUCOVORIN [Suspect]
     Active Substance: LEUCOVORIN
     Indication: PANCREATIC CARCINOMA
     Dates: end: 20150219
  2. IRINOTECAN [Suspect]
     Active Substance: IRINOTECAN
  3. ALPRAZOLAM. [Concomitant]
     Active Substance: ALPRAZOLAM
  4. LOPERAMIDE [Concomitant]
     Active Substance: LOPERAMIDE
  5. ONDANSETRON (ZOFRAN) [Concomitant]
  6. LEUCORIN [Concomitant]
  7. LOMOTIL (DIPHENOXYLATE-ATROPINE) [Concomitant]
  8. 5-FU [Suspect]
     Active Substance: FLUOROURACIL
     Indication: PANCREATIC CARCINOMA
     Dates: end: 20150219
  9. DEXAMETHASONE. [Concomitant]
     Active Substance: DEXAMETHASONE
  10. OXYCODONE HCL [Concomitant]
     Active Substance: OXYCODONE HYDROCHLORIDE
  11. FOLFIRINOX (IRINOTECAN) [Concomitant]
  12. NEUPOGEN [Concomitant]
     Active Substance: FILGRASTIM
  13. OXALIPLATIN. [Suspect]
     Active Substance: OXALIPLATIN
  14. OXALIPLATIN. [Concomitant]
     Active Substance: OXALIPLATIN
  15. PROCHLORPERAZINE MALEATE (COMPAZINE) [Concomitant]
  16. LIDOCAINE-PRILOCAINE [Concomitant]
     Active Substance: LIDOCAINE\PRILOCAINE

REACTIONS (4)
  - Diarrhoea [None]
  - Pyrexia [None]
  - Nausea [None]
  - Abdominal pain [None]

NARRATIVE: CASE EVENT DATE: 20150227
